FAERS Safety Report 9516108 (Version 3)
Quarter: 2013Q3

REPORT INFORMATION
  Report Type: Report from Study
  Country: SE (occurrence: SE)
  Receive Date: 20130911
  Receipt Date: 20130917
  Transmission Date: 20140515
  Serious: Yes (Other)
  Sender: FDA-Public Use
  Company Number: SE-VERTEX PHARMACEUTICALS INC-2013-009187

PATIENT
  Age: 58 Year
  Sex: Male
  Weight: 65 kg

DRUGS (10)
  1. BLINDED PRE-TREATMENT [Suspect]
     Indication: CHRONIC HEPATITIS C
     Dosage: 750 MG, TID
     Route: 048
     Dates: start: 20121030, end: 20121208
  2. BLINDED TMC435 [Suspect]
     Indication: CHRONIC HEPATITIS C
     Dosage: 750 MG, TID
     Route: 048
     Dates: start: 20121030, end: 20121208
  3. BLINDED VX-950 (TELAPREVIR) [Suspect]
     Indication: CHRONIC HEPATITIS C
     Dosage: 750 MG, TID
     Route: 048
     Dates: start: 20121030, end: 20121208
  4. PEGINTERFERON ALFA-2A [Suspect]
     Indication: CHRONIC HEPATITIS C
     Dosage: DOSAGE FORM: INJECTION
     Route: 058
     Dates: start: 20121030, end: 20121208
  5. RIBAVIRIN [Suspect]
     Indication: CHRONIC HEPATITIS C
     Dosage: DOSAGE FORM: TABLET, 2 DOSES IN THE MORNING AND 3 DOSES IN THE EVENING
     Route: 048
     Dates: start: 20121030, end: 20121129
  6. RIBAVIRIN [Suspect]
     Dosage: DOSAGE FORM: TABLET, 1 DOSE IN THE MORNING AND 2 DOSES IN THE EVENING
     Route: 048
     Dates: start: 20121130, end: 20121208
  7. NOVORAPID [Concomitant]
     Dosage: 8 IU, QID
     Route: 058
  8. LANTUS [Concomitant]
     Dosage: 10 IU, QD
     Route: 058
  9. LANTUS [Concomitant]
     Dosage: 20 IU, QD
     Route: 058
  10. METADON [Concomitant]
     Dosage: 120 MG, QD
     Route: 048

REACTIONS (2)
  - Lung adenocarcinoma [Not Recovered/Not Resolved]
  - Nausea [Recovered/Resolved]
